FAERS Safety Report 5052601-8 (Version None)
Quarter: 2006Q3

REPORT INFORMATION
  Report Type: 
  Country: None (occurrence: None)
  Receive Date: 20060717
  Receipt Date: 20060705
  Transmission Date: 20061208
  Serious: Yes (Hospitalization)
  Sender: FDA-Public Use
  Company Number: FR-GLAXOSMITHKLINE-B0430398A

PATIENT
  Age: 66 Year
  Sex: Male

DRUGS (4)
  1. SERETIDE DISKUS [Suspect]
     Dosage: 1PUFF TWICE PER DAY
     Route: 055
     Dates: start: 20040301, end: 20060101
  2. RITONAVIR [Suspect]
     Indication: HIV INFECTION
     Dosage: 100MG TWICE PER DAY
     Route: 048
     Dates: start: 20020601
  3. LOPINAVIR [Concomitant]
     Indication: HIV INFECTION
     Dosage: 400MG TWICE PER DAY
     Route: 048
     Dates: start: 20020601
  4. INVIRASE [Concomitant]
     Indication: HIV INFECTION
     Dosage: 1000MG TWICE PER DAY
     Route: 048
     Dates: start: 20050201

REACTIONS (17)
  - ADRENAL INSUFFICIENCY [None]
  - AMYOTROPHY [None]
  - BONE PAIN [None]
  - CENTRAL OBESITY [None]
  - CUSHING'S SYNDROME [None]
  - DEPRESSION [None]
  - DIABETES MELLITUS INSULIN-DEPENDENT [None]
  - DRUG INTERACTION [None]
  - HYPERLACTACIDAEMIA [None]
  - HYPERTENSION [None]
  - HYPERTRIGLYCERIDAEMIA [None]
  - METABOLIC SYNDROME [None]
  - MITOCHONDRIAL CYTOPATHY [None]
  - OSTEOPOROSIS [None]
  - PURPURA [None]
  - SKIN FRAGILITY [None]
  - SPINAL COMPRESSION FRACTURE [None]
